FAERS Safety Report 8372803-2 (Version None)
Quarter: 2012Q2

REPORT INFORMATION
  Report Type: 
  Country: None (occurrence: None)
  Receive Date: 20120521
  Receipt Date: 20120516
  Transmission Date: 20120825
  Serious: Yes (Hospitalization, Other)
  Sender: FDA-Public Use
  Company Number: BR-PFIZER INC-2012120031

PATIENT
  Age: 77 Year
  Sex: Male

DRUGS (2)
  1. CELEBREX [Suspect]
     Indication: PAIN
     Dosage: UNK
  2. MORPHINE SULFATE [Concomitant]
     Indication: PAIN
     Dosage: UNK

REACTIONS (3)
  - BLINDNESS [None]
  - NEOPLASM [None]
  - BONE NEOPLASM MALIGNANT [None]
